FAERS Safety Report 6244185-3 (Version None)
Quarter: 2009Q2

REPORT INFORMATION
  Report Type: 
  Country: None (occurrence: None)
  Receive Date: 20090625
  Receipt Date: 20090615
  Transmission Date: 20091009
  Serious: Yes (Hospitalization)
  Sender: FDA-Public Use
  Company Number: US-BIOGENIDEC-2009BI018667

PATIENT
  Age: 32 Year
  Sex: Female

DRUGS (1)
  1. AVONEX [Suspect]
     Indication: MULTIPLE SCLEROSIS
     Route: 030
     Dates: start: 20070801, end: 20080401

REACTIONS (3)
  - DYSPNOEA [None]
  - HYPERSENSITIVITY [None]
  - OXYGEN SATURATION DECREASED [None]
